FAERS Safety Report 9018568 (Version 1)
Quarter: 2013Q1

REPORT INFORMATION
  Report Type: Spontaneous
  Country: US (occurrence: None)
  Receive Date: 20130111
  Receipt Date: 20130111
  Transmission Date: 20140127
  Serious: No
  Sender: FDA-Public Use
  Company Number: None

PATIENT
  Age: 83 Year
  Sex: Female

DRUGS (1)
  1. MELOXICAM (MOBIC) [Suspect]
     Indication: ARTHRITIS
     Dates: start: 20110826, end: 20110901

REACTIONS (6)
  - Hepatitis cholestatic [None]
  - Malignant ascites [None]
  - Adenocarcinoma [None]
  - Hepatotoxicity [None]
  - Cholestatic liver injury [None]
  - Hepatocellular injury [None]
